FAERS Safety Report 13982526 (Version 1)
Quarter: 2017Q3

REPORT INFORMATION
  Report Type: Spontaneous
  Country: US (occurrence: US)
  Receive Date: 20170918
  Receipt Date: 20170918
  Transmission Date: 20171128
  Serious: No
  Sender: FDA-Public Use
  Company Number: US-PFIZER INC-2017399992

PATIENT
  Age: 72 Year
  Sex: Female

DRUGS (2)
  1. TIKOSYN [Suspect]
     Active Substance: DOFETILIDE
     Dosage: UNK
     Dates: start: 201707
  2. TIKOSYN [Suspect]
     Active Substance: DOFETILIDE
     Indication: ATRIAL FIBRILLATION
     Dosage: UNK
     Dates: start: 201609

REACTIONS (1)
  - Drug effect incomplete [Unknown]
